FAERS Safety Report 11581158 (Version 1)
Quarter: 2015Q4

REPORT INFORMATION
  Report Type: Spontaneous
  Country: BR (occurrence: BR)
  Receive Date: 20151001
  Receipt Date: 20151001
  Transmission Date: 20160304
  Serious: Yes (Hospitalization, Other)
  Sender: FDA-Public Use
  Company Number: BR-BRISTOL-MYERS SQUIBB COMPANY-BMS-2015-065400

PATIENT
  Sex: Male
  Weight: 73 kg

DRUGS (5)
  1. CRESTOR [Concomitant]
     Active Substance: ROSUVASTATIN CALCIUM
     Indication: BLOOD CHOLESTEROL
     Dosage: UNK
     Route: 065
  2. AMLODIPINE BESILATE [Concomitant]
     Active Substance: AMLODIPINE BESYLATE
     Indication: DISCOMFORT
     Dosage: UNK
     Route: 065
  3. LOTAR                              /01121602/ [Concomitant]
     Indication: DISCOMFORT
     Dosage: UNK
     Route: 065
  4. ELIQUIS [Suspect]
     Active Substance: APIXABAN
     Indication: CEREBROVASCULAR ACCIDENT PROPHYLAXIS
     Dosage: 5 MG, QD
     Route: 048
  5. ATLANSIL                           /00133101/ [Concomitant]
     Indication: ARRHYTHMIA
     Route: 065

REACTIONS (2)
  - Arrhythmia [Unknown]
  - Infarction [Unknown]
